FAERS Safety Report 16896091 (Version 1)
Quarter: 2019Q4

REPORT INFORMATION
  Report Type: Spontaneous
  Country: US (occurrence: US)
  Receive Date: 20190814
  Receipt Date: 20190814
  Transmission Date: 20200122
  Serious: No
  Sender: FDA-Public Use
  Company Number: None

PATIENT
  Age: 67 Year
  Sex: Female

DRUGS (1)
  1. PROLIA [Suspect]
     Active Substance: DENOSUMAB
     Indication: OSTEOPOROSIS
     Dates: start: 20190222, end: 20190814

REACTIONS (3)
  - Weight decreased [None]
  - Abdominal discomfort [None]
  - Blood pressure increased [None]

NARRATIVE: CASE EVENT DATE: 20190222
